FAERS Safety Report 20123894 (Version 6)
Quarter: 2022Q4

REPORT INFORMATION
  Report Type: Spontaneous
  Country: CA (occurrence: CA)
  Receive Date: 20211129
  Receipt Date: 20221115
  Transmission Date: 20230113
  Serious: Yes (Hospitalization, Other)
  Sender: FDA-Public Use
  Company Number: CA-CELLTRION INC.-2021CA010459

PATIENT

DRUGS (14)
  1. INFLECTRA [Suspect]
     Active Substance: INFLIXIMAB-DYYB
     Indication: Crohn^s disease
     Dosage: 700 MG EVERY 0, 2, 6 WEEKS THEN EVERY 8 WEEKS, FIRST DOSE GIVEN IN HOSPITAL
     Route: 042
     Dates: start: 20210607
  2. INFLECTRA [Suspect]
     Active Substance: INFLIXIMAB-DYYB
     Dosage: 700 MG EVERY 0, 2, 6 WEEKS THEN EVERY 8 WEEKS, FIRST DOSE GIVEN IN HOSPITAL
     Route: 042
     Dates: start: 20210623
  3. INFLECTRA [Suspect]
     Active Substance: INFLIXIMAB-DYYB
     Dosage: 700 MG EVERY 0, 2, 6 WEEKS THEN EVERY 8 WEEKS, FIRST DOSE GIVEN IN HOSPITAL
     Route: 042
     Dates: start: 20210723
  4. INFLECTRA [Suspect]
     Active Substance: INFLIXIMAB-DYYB
     Dosage: 700 MG, Q 0, 2, 6 WEEKS THEN EVERY 8 WEEKS, FIRST DOSE GIVEN IN HOSPITAL
     Route: 042
     Dates: start: 20210922
  5. INFLECTRA [Suspect]
     Active Substance: INFLIXIMAB-DYYB
     Dosage: 700 MG, Q 0, 2, 6 WEEKS THEN EVERY 8 WEEKS, FIRST DOSE GIVEN IN HOSPITAL
     Route: 042
     Dates: start: 20211207
  6. INFLECTRA [Suspect]
     Active Substance: INFLIXIMAB-DYYB
     Dosage: 700 MG,Q 0, 2, 6 WEEKS THEN EVERY 8 WEEKS, FIRST DOSE GIVEN IN HOSPITAL
     Route: 042
     Dates: start: 20220127
  7. INFLECTRA [Suspect]
     Active Substance: INFLIXIMAB-DYYB
     Dosage: 700 MG,Q 0, 2, 6 WEEKS THEN EVERY 8 WEEKS, FIRST DOSE GIVEN IN HOSPITAL
     Route: 042
     Dates: start: 20220331
  8. INFLECTRA [Suspect]
     Active Substance: INFLIXIMAB-DYYB
     Dosage: 700 MG,Q 0, 2, 6 WEEKS THEN EVERY 8 WEEKS, FIRST DOSE GIVEN IN HOSPITAL
     Route: 042
     Dates: start: 20220613
  9. INFLECTRA [Suspect]
     Active Substance: INFLIXIMAB-DYYB
     Dosage: 700 MG,Q 0, 2, 6 WEEKS THEN EVERY 8 WEEKS, FIRST DOSE GIVEN IN HOSPITAL
     Route: 042
     Dates: start: 20220809
  10. INFLECTRA [Suspect]
     Active Substance: INFLIXIMAB-DYYB
     Dosage: 700 MG,Q 0, 2, 6 WEEKS THEN EVERY 8 WEEKS, FIRST DOSE GIVEN IN HOSPITAL
     Route: 042
     Dates: start: 20221103
  11. PANTOPRAZOLE [Concomitant]
     Active Substance: PANTOPRAZOLE
     Dosage: 1 DF DOSAGE NOT AVAILABLE
     Route: 065
     Dates: start: 20210610
  12. PREDNISONE [Concomitant]
     Active Substance: PREDNISONE
     Dosage: 1 DF DOSAGE NOT AVAILABLE
     Route: 065
  13. RISEDRONATE SODIUM [Concomitant]
     Active Substance: RISEDRONATE SODIUM
     Dosage: 1 DF DOSAGE NOT AVAILABLE
     Route: 065
     Dates: start: 20210610
  14. VITAMIN D3 [Concomitant]
     Active Substance: CHOLECALCIFEROL
     Dosage: 1 DF DOSAGE NOT AVAILABLE
     Route: 065

REACTIONS (9)
  - Gastrointestinal disorder [Recovered/Resolved]
  - Intestinal perforation [Not Recovered/Not Resolved]
  - Abdominal abscess [Not Recovered/Not Resolved]
  - Intestinal obstruction [Not Recovered/Not Resolved]
  - Infection [Not Recovered/Not Resolved]
  - Condition aggravated [Recovering/Resolving]
  - Weight fluctuation [Unknown]
  - Inappropriate schedule of product administration [Unknown]
  - Off label use [Unknown]

NARRATIVE: CASE EVENT DATE: 20210101
